FAERS Safety Report 16663986 (Version 2)
Quarter: 2020Q1

REPORT INFORMATION
  Report Type: Spontaneous
  Country: KR (occurrence: KR)
  Receive Date: 20190802
  Receipt Date: 20200102
  Transmission Date: 20200409
  Serious: Yes (Hospitalization)
  Sender: FDA-Public Use
  Company Number: KR-ABBVIE-19P-090-2875808-00

PATIENT
  Age: 51 Year
  Sex: Male
  Weight: 79.1 kg

DRUGS (23)
  1. LACOSAMIDE. [Suspect]
     Active Substance: LACOSAMIDE
     Dosage: NEOPAT 25MG 1TAB QD
     Route: 048
  2. CEREBREX [Concomitant]
     Active Substance: CALCIUM GLYCEROPHOSPHATE\CALCIUM PHOSPHATE\GLUTAMIC ACID\VITAMIN B
     Indication: ANALGESIC THERAPY
     Route: 048
     Dates: start: 20190128
  3. FYCOMPA [Concomitant]
     Active Substance: PERAMPANEL
     Indication: EPILEPSY
     Route: 048
     Dates: start: 20160623
  4. INDENOL [Concomitant]
     Active Substance: PROPRANOLOL HYDROCHLORIDE
     Indication: COUGH
     Route: 048
     Dates: start: 20181127
  5. LIPITOR [Concomitant]
     Active Substance: ATORVASTATIN CALCIUM
     Indication: HYPERLIPIDAEMIA
     Route: 048
     Dates: start: 20160523
  6. NEUROCOVER PG [Concomitant]
     Indication: EPILEPSY
     Route: 048
     Dates: start: 20190311
  7. QUDEXY XR [Concomitant]
     Active Substance: TOPIRAMATE
     Indication: EPILEPSY
     Route: 048
     Dates: start: 20181114
  8. LACOSAMIDE. [Suspect]
     Active Substance: LACOSAMIDE
     Indication: PRODUCT USED FOR UNKNOWN INDICATION
     Dosage: NEOPAT
     Route: 048
  9. ANYCOUGH [Concomitant]
     Active Substance: THEOBROMINE
     Indication: COUGH
     Dates: start: 20180912, end: 20190324
  10. EXCEGRAN [Concomitant]
     Active Substance: ZONISAMIDE
     Indication: EPILEPSY
     Dates: start: 20140910
  11. LAMICTAL [Concomitant]
     Active Substance: LAMOTRIGINE
     Indication: EPILEPSY
     Route: 048
     Dates: start: 20140910
  12. RINOEBASTEL [Concomitant]
     Indication: COUGH
     Route: 048
     Dates: start: 20190225
  13. SURFOLASE [Concomitant]
     Indication: COUGH
     Route: 048
     Dates: start: 20190128, end: 20190226
  14. LEVOPRIDE [Concomitant]
     Indication: PROPHYLAXIS
     Route: 048
     Dates: start: 20181231
  15. NAXOZOL [Concomitant]
     Indication: ANALGESIC THERAPY
     Dosage: 500/20 MG
     Route: 048
     Dates: start: 20190306, end: 20190429
  16. DEPAKOTE ER [Suspect]
     Active Substance: DIVALPROEX SODIUM
     Indication: EPILEPSY
     Route: 048
     Dates: start: 20181227
  17. ENAFON [Concomitant]
     Indication: DEPRESSION
     Route: 048
     Dates: start: 20140829
  18. KEPPRA [Concomitant]
     Active Substance: LEVETIRACETAM
     Indication: EPILEPSY
     Route: 048
     Dates: start: 20150302
  19. LACOSAMIDE. [Suspect]
     Active Substance: LACOSAMIDE
     Dosage: NEOPAT 50MG 1TAB QD
     Route: 048
  20. CODENAL [Concomitant]
     Indication: COUGH
     Route: 048
     Dates: start: 20180912
  21. HARNAL [Concomitant]
     Active Substance: TAMSULOSIN HYDROCHLORIDE
     Indication: DYSURIA
     Route: 048
     Dates: start: 20190409
  22. LEXAPRO [Concomitant]
     Active Substance: ESCITALOPRAM OXALATE
     Indication: DEPRESSION
     Route: 048
     Dates: start: 20180719
  23. NICOPION [Concomitant]
     Indication: DEPRESSION
     Route: 048
     Dates: start: 20180614

REACTIONS (6)
  - Lumbar spinal stenosis [Recovered/Resolved]
  - Pain [Recovered/Resolved]
  - Gait disturbance [Recovered/Resolved]
  - Lipomatosis [Recovered/Resolved]
  - Ligament sprain [Recovered/Resolved]
  - Dysuria [Recovered/Resolved]

NARRATIVE: CASE EVENT DATE: 20190325
